FAERS Safety Report 9421731 (Version 2)
Quarter: 2013Q3

REPORT INFORMATION
  Report Type: Spontaneous
  Country: US (occurrence: US)
  Receive Date: 20130726
  Receipt Date: 20130810
  Transmission Date: 20140515
  Serious: No
  Sender: FDA-Public Use
  Company Number: US-009507513-1307USA010430

PATIENT
  Age: 82 Year
  Sex: Female
  Weight: 82.99 kg

DRUGS (2)
  1. JANUMET XR [Suspect]
     Indication: DIABETES MELLITUS
     Dosage: 100/1000 MG, ONCE DAILY IN THE EVENING WITH DINNER
     Route: 048
     Dates: start: 20130709, end: 20130717
  2. JANUMET [Suspect]
     Indication: DIABETES MELLITUS
     Dosage: 50/100, BID
     Route: 048

REACTIONS (2)
  - Feeling jittery [Recovered/Resolved]
  - Malaise [Recovered/Resolved]
